FAERS Safety Report 8231367-4 (Version None)
Quarter: 2012Q1

REPORT INFORMATION
  Report Type: 
  Country: None (occurrence: None)
  Receive Date: 20120323
  Receipt Date: 20120313
  Transmission Date: 20120608
  Serious: Yes (Other)
  Sender: FDA-Public Use
  Company Number: US-VERTEX PHARMACEUTICALS INC.-AE-2012-003582

PATIENT
  Sex: Female

DRUGS (14)
  1. LOTREL [Concomitant]
  2. AMITRIPTYLINE HCL [Concomitant]
  3. AMBIEN [Concomitant]
  4. OXYCODONE HCL [Concomitant]
  5. IBUPROFEN [Concomitant]
  6. KEPPRA [Concomitant]
  7. PROZAC [Concomitant]
  8. ZYRTEC [Concomitant]
  9. VALTREX [Concomitant]
  10. RIBAVIRIN [Concomitant]
     Indication: HEPATITIS C
     Dates: start: 20111201
  11. INCIVEK [Suspect]
     Indication: HEPATITIS C
     Route: 048
     Dates: start: 20111201
  12. REQUIP [Concomitant]
  13. PEGASYS [Concomitant]
     Indication: HEPATITIS C
     Dates: start: 20111201
  14. ZONISAMIDE [Concomitant]

REACTIONS (1)
  - POSTERIOR REVERSIBLE ENCEPHALOPATHY SYNDROME [None]
